FAERS Safety Report 13226114 (Version 2)
Quarter: 2017Q1

REPORT INFORMATION
  Report Type: Spontaneous
  Country: US (occurrence: US)
  Receive Date: 20170213
  Receipt Date: 20170303
  Transmission Date: 20170428
  Serious: Yes (Death, Hospitalization, Other)
  Sender: FDA-Public Use
  Company Number: US-009507513-1702USA002335

PATIENT
  Sex: Female

DRUGS (1)
  1. TEMODAR [Suspect]
     Active Substance: TEMOZOLOMIDE
     Indication: GLIOBLASTOMA
     Dosage: 4 CAPSULES (TOTAL OF 80 MG), DAILY
     Route: 048
     Dates: start: 20160915, end: 20161220

REACTIONS (3)
  - Back pain [Unknown]
  - Product use issue [Unknown]
  - Glioblastoma [Fatal]
